FAERS Safety Report 4990691-9 (Version None)
Quarter: 2006Q1

REPORT INFORMATION
  Report Type: 
  Country: None (occurrence: None)
  Receive Date: 20060314
  Receipt Date: 20060110
  Transmission Date: 20060701
  Serious: No
  Sender: FDA-Public Use
  Company Number: 2005-02016

PATIENT
  Age: 75 Year
  Sex: Male
  Weight: 73.9 kg

DRUGS (12)
  1. VELCADE [Suspect]
     Indication: MULTIPLE MYELOMA
     Dosage: 2.40 MG ; 1.50 MG ; 2.40 MG
     Dates: start: 20050816, end: 20050909
  2. VELCADE [Suspect]
     Indication: MULTIPLE MYELOMA
     Dosage: 2.40 MG ; 1.50 MG ; 2.40 MG
     Dates: start: 20050913, end: 20050916
  3. VELCADE [Suspect]
     Indication: MULTIPLE MYELOMA
     Dosage: 2.40 MG ; 1.50 MG ; 2.40 MG
     Dates: start: 20050927
  4. HYDROCODONE BITARTRATE [Concomitant]
  5. PREVACID [Concomitant]
  6. TYLENOL PM (DIPHENHYDRAMINE, PARACETAMOL) [Concomitant]
  7. ALLEGRA-D 12 HOUR [Concomitant]
  8. BENADRYL ^WARNER-LAMBERT^/USA/(DIPHENHYDRAMINE HYDROCHLORIDE) [Concomitant]
  9. MILK OF MAGNESIA TAB [Concomitant]
  10. DULCOLAX [Concomitant]
  11. TEGASEROD (TEGASEROD) [Concomitant]
  12. IMODIUM [Concomitant]

REACTIONS (2)
  - HYPOAESTHESIA [None]
  - PARAESTHESIA [None]
